FAERS Safety Report 7663869-3 (Version None)
Quarter: 2011Q3

REPORT INFORMATION
  Report Type: 
  Country: None (occurrence: None)
  Receive Date: 20110805
  Receipt Date: 20100805
  Transmission Date: 20111222
  Serious: No
  Sender: FDA-Public Use
  Company Number: US-ABBOTT-10P-163-0661906-00

PATIENT
  Sex: Female
  Weight: 102.15 kg

DRUGS (9)
  1. VYTORIN [Concomitant]
     Indication: PRODUCT USED FOR UNKNOWN INDICATION
  2. NORVASC [Concomitant]
     Indication: PRODUCT USED FOR UNKNOWN INDICATION
  3. NIASPAN [Suspect]
     Indication: LOW DENSITY LIPOPROTEIN ABNORMAL
     Dosage: 500-1000MG AT BEDTIME
  4. NIASPAN [Suspect]
     Indication: BLOOD TRIGLYCERIDES ABNORMAL
  5. VITAMIN TAB [Concomitant]
     Indication: PRODUCT USED FOR UNKNOWN INDICATION
  6. NEXIUM [Concomitant]
     Indication: PRODUCT USED FOR UNKNOWN INDICATION
  7. OXYBUTIN [Concomitant]
     Indication: PRODUCT USED FOR UNKNOWN INDICATION
  8. NIASPAN [Suspect]
     Indication: HIGH DENSITY LIPOPROTEIN ABNORMAL
  9. TOPROL-XL [Concomitant]
     Indication: PRODUCT USED FOR UNKNOWN INDICATION

REACTIONS (2)
  - FLUSHING [None]
  - PRURITUS [None]
